FAERS Safety Report 14994104 (Version 2)
Quarter: 2018Q2

REPORT INFORMATION
  Report Type: Spontaneous
  Country: ES (occurrence: ES)
  Receive Date: 20180611
  Receipt Date: 20180620
  Transmission Date: 20180711
  Serious: Yes (Hospitalization, Other)
  Sender: FDA-Public Use
  Company Number: ES-ROCHE-2132649

PATIENT
  Age: 57 Year
  Sex: Female

DRUGS (4)
  1. XELODA [Suspect]
     Active Substance: CAPECITABINE
     Indication: BREAST CANCER METASTATIC
     Route: 065
     Dates: end: 201805
  2. XELODA [Interacting]
     Active Substance: CAPECITABINE
     Route: 065
     Dates: start: 201805
  3. VALACICLOVIR [Concomitant]
     Active Substance: VALACYCLOVIR HYDROCHLORIDE
     Indication: HERPES VIRUS INFECTION
     Route: 065
     Dates: start: 201805
  4. NERVINEX [Interacting]
     Active Substance: BRIVUDINE
     Indication: HERPES VIRUS INFECTION
     Route: 065

REACTIONS (10)
  - Neutropenia [Recovered/Resolved]
  - Bone marrow failure [Not Recovered/Not Resolved]
  - Acquired pyrimidine metabolism disorder [Unknown]
  - Herpes simplex [Unknown]
  - Drug interaction [Unknown]
  - Palmar-plantar erythrodysaesthesia syndrome [Recovering/Resolving]
  - Thrombocytopenia [Recovered/Resolved]
  - Anaemia [Recovered/Resolved]
  - Diarrhoea [Recovered/Resolved]
  - Alopecia [Unknown]

NARRATIVE: CASE EVENT DATE: 201805
